FAERS Safety Report 13724805 (Version 1)
Quarter: 2017Q3

REPORT INFORMATION
  Report Type: Spontaneous
  Country: FR (occurrence: FR)
  Receive Date: 20170706
  Receipt Date: 20170706
  Transmission Date: 20171127
  Serious: Yes (Other)
  Sender: FDA-Public Use
  Company Number: FR-BAYER-2017-128335

PATIENT
  Sex: Female

DRUGS (1)
  1. MIRENA [Suspect]
     Active Substance: LEVONORGESTREL
     Indication: CONTRACEPTION
     Dosage: 20 MCG/24HR, CONT
     Route: 015
     Dates: start: 19990101, end: 20170313

REACTIONS (7)
  - Diabetes mellitus [Unknown]
  - Thyroid disorder [Unknown]
  - Mood altered [Unknown]
  - Anxiety [Unknown]
  - Loss of libido [Unknown]
  - Arthralgia [Unknown]
  - Weight increased [Unknown]
